FAERS Safety Report 20568446 (Version 4)
Quarter: 2022Q1

REPORT INFORMATION
  Report Type: Spontaneous
  Country: US (occurrence: US)
  Receive Date: 20220308
  Receipt Date: 20220315
  Transmission Date: 20220423
  Serious: Yes (Hospitalization)
  Sender: FDA-Public Use
  Company Number: US-CELGENE-USA-20220301208

PATIENT
  Age: 53 Year
  Sex: Male
  Weight: 83.6 kg

DRUGS (22)
  1. LENALIDOMIDE [Suspect]
     Active Substance: LENALIDOMIDE
     Indication: Mantle cell lymphoma
     Dosage: 40 MILLIGRAM
     Route: 048
     Dates: start: 20200220
  2. LENALIDOMIDE [Suspect]
     Active Substance: LENALIDOMIDE
     Dosage: 40 MILLIGRAM
     Route: 048
     Dates: start: 20220301
  3. ALBUTEROL SULFATE [Concomitant]
     Active Substance: ALBUTEROL SULFATE
     Indication: Asthma
     Route: 065
     Dates: start: 20220215
  4. ACALABRUTINIB [Concomitant]
     Active Substance: ACALABRUTINIB
     Indication: Mantle cell lymphoma
     Dosage: 400 MILLIGRAM
     Route: 048
     Dates: start: 20200220, end: 20220301
  5. ASPIRIN [Concomitant]
     Active Substance: ASPIRIN
     Indication: Pain
     Route: 048
     Dates: start: 20220301, end: 20220307
  6. BENZONATATE [Concomitant]
     Active Substance: BENZONATATE
     Indication: Cough
     Dosage: 300 MILLIGRAM
     Route: 048
     Dates: start: 20211116, end: 20220215
  7. BENZONATATE [Concomitant]
     Active Substance: BENZONATATE
     Dosage: 300 MILLIGRAM
     Route: 048
     Dates: start: 20220302, end: 20220307
  8. CHLORHEXIDINE [Concomitant]
     Active Substance: CHLORHEXIDINE
     Indication: Dental disorder prophylaxis
     Dosage: 1 OUNCE
     Route: 048
  9. CICLOPIROX [Concomitant]
     Active Substance: CICLOPIROX
     Indication: Skin irritation
     Route: 061
  10. FLUTICASONE PROPIONATE [Concomitant]
     Active Substance: FLUTICASONE PROPIONATE
     Indication: Skin irritation
     Route: 065
  11. Guaifenesin codeine [Concomitant]
     Indication: Nasal congestion
     Dosage: 15 MILLILITER
     Route: 048
     Dates: start: 202201, end: 20220215
  12. IBUPROFEN [Concomitant]
     Active Substance: IBUPROFEN
     Indication: Pain
     Route: 048
     Dates: end: 20220215
  13. IBUPROFEN [Concomitant]
     Active Substance: IBUPROFEN
     Route: 048
     Dates: start: 20220302
  14. KETOCONAZOLE [Concomitant]
     Active Substance: KETOCONAZOLE
     Indication: Antifungal treatment
     Route: 061
     Dates: end: 20220215
  15. TACROLIMUS [Concomitant]
     Active Substance: TACROLIMUS
     Indication: Skin irritation
     Route: 061
  16. Guaifenesin dextromethorphan [Concomitant]
     Indication: Nasal congestion
     Route: 048
     Dates: start: 20220307
  17. BUDESONIDE [Concomitant]
     Active Substance: BUDESONIDE
     Indication: Asthma
     Dosage: 180 MICROGRAM
     Route: 065
     Dates: start: 20220307
  18. CODEINE SULFATE [Concomitant]
     Active Substance: CODEINE SULFATE
     Indication: Pain
     Route: 065
     Dates: start: 20220307
  19. PREDNISONE [Concomitant]
     Active Substance: PREDNISONE
     Indication: Product used for unknown indication
     Dosage: 160 MILLIGRAM
     Route: 048
     Dates: start: 20220306
  20. UNSPECIFIED INGREDIENT [Concomitant]
     Active Substance: UNSPECIFIED INGREDIENT
     Indication: Product used for unknown indication
     Route: 065
     Dates: start: 20210301, end: 20210301
  21. UNSPECIFIED INGREDIENT [Concomitant]
     Active Substance: UNSPECIFIED INGREDIENT
     Route: 065
     Dates: start: 20210329, end: 20210329
  22. UNSPECIFIED INGREDIENT [Concomitant]
     Active Substance: UNSPECIFIED INGREDIENT
     Route: 065
     Dates: start: 20211006, end: 20211006

REACTIONS (3)
  - COVID-19 [Recovering/Resolving]
  - Pyrexia [Recovered/Resolved]
  - Pneumonia [Recovering/Resolving]

NARRATIVE: CASE EVENT DATE: 20220101
